FAERS Safety Report 7514871-3 (Version None)
Quarter: 2011Q2

REPORT INFORMATION
  Report Type: 
  Country: None (occurrence: None)
  Receive Date: 20110601
  Receipt Date: 20110518
  Transmission Date: 20111010
  Serious: Yes (Hospitalization)
  Sender: FDA-Public Use
  Company Number: PT-JNJFOC-20101207765

PATIENT
  Sex: Female

DRUGS (6)
  1. REMICADE [Suspect]
     Route: 042
     Dates: start: 20090101, end: 20101201
  2. REMICADE [Suspect]
     Indication: RHEUMATOID ARTHRITIS
     Route: 042
     Dates: start: 20070101
  3. METHOTREXATE [Suspect]
     Indication: PRODUCT USED FOR UNKNOWN INDICATION
     Dates: end: 20101201
  4. ANTI-INFLAMMATORY DRUG [Concomitant]
     Indication: RHEUMATOID ARTHRITIS
  5. SERTRALINE HYDROCHLORIDE [Concomitant]
  6. ANTITHROMBOTICS [Concomitant]

REACTIONS (2)
  - DRUG INEFFECTIVE [None]
  - OVARIAN CANCER [None]
